FAERS Safety Report 9791772 (Version 1)
Quarter: 2014Q1

REPORT INFORMATION
  Report Type: Spontaneous
  Country: US (occurrence: US)
  Receive Date: 20140102
  Receipt Date: 20140102
  Transmission Date: 20141002
  Serious: Yes (Hospitalization)
  Sender: FDA-Public Use
  Company Number: US-JNJFOC-20131216579

PATIENT
  Sex: Male

DRUGS (2)
  1. RISPERDAL [Suspect]
     Indication: SCHIZOPHRENIA
     Route: 065
  2. RISPERDAL [Suspect]
     Indication: BIPOLAR DISORDER
     Route: 065

REACTIONS (4)
  - Hospitalisation [Unknown]
  - Suicidal ideation [Unknown]
  - Fear of death [Unknown]
  - Galactorrhoea [Unknown]
